FAERS Safety Report 8122633-1 (Version None)
Quarter: 2012Q1

REPORT INFORMATION
  Report Type: 
  Country: None (occurrence: None)
  Receive Date: 20120208
  Receipt Date: 20120131
  Transmission Date: 20120608
  Serious: Yes (Other)
  Sender: FDA-Public Use
  Company Number: US-BRISTOL-MYERS SQUIBB COMPANY-16163925

PATIENT
  Age: 73 Year
  Sex: Male

DRUGS (7)
  1. LOMOTIL [Concomitant]
     Indication: DIARRHOEA
     Dosage: 1 DF: TAB
  2. QUINAPRIL [Concomitant]
     Route: 048
  3. IMODIUM [Concomitant]
     Indication: DIARRHOEA
     Dosage: 1 DF: 1 TAB
  4. LIPITOR [Concomitant]
     Route: 048
  5. FERROUS SULFATE TAB [Concomitant]
  6. YERVOY [Suspect]
     Indication: METASTATIC MALIGNANT MELANOMA
     Dosage: RECEIVED 2 DOSES ALSO EXP DT:JAN2014 .245 MG EVERY 3 WEEKS
     Route: 042
     Dates: start: 20110902
  7. ACTOS [Concomitant]
     Dosage: 1DF:15/500 UNITS NOS

REACTIONS (1)
  - TREMOR [None]
